FAERS Safety Report 11181379 (Version 1)
Quarter: 2015Q2

REPORT INFORMATION
  Report Type: Spontaneous
  Country: US (occurrence: US)
  Receive Date: 20150611
  Receipt Date: 20150611
  Transmission Date: 20150821
  Serious: No
  Sender: FDA-Public Use
  Company Number: US-BAYER-2015-323308

PATIENT
  Age: 73 Year
  Sex: Female
  Weight: 50 kg

DRUGS (3)
  1. TYLENOL [Concomitant]
     Active Substance: ACETAMINOPHEN
     Dosage: UNK
  2. CLARITIN REDITABS [Suspect]
     Active Substance: LORATADINE
     Indication: MASTOCYTOSIS
     Dosage: 1 DF, QD
     Route: 048
     Dates: start: 20150531
  3. CLARITIN REDITABS [Suspect]
     Active Substance: LORATADINE
     Indication: COLD URTICARIA

REACTIONS (1)
  - Product use issue [None]

NARRATIVE: CASE EVENT DATE: 20150531
